FAERS Safety Report 4559645-0 (Version None)
Quarter: 2005Q1

REPORT INFORMATION
  Report Type: 
  Country: None (occurrence: None)
  Receive Date: 20050113
  Receipt Date: 20040923
  Transmission Date: 20050727
  Serious: Yes (Other)
  Sender: FDA-Public Use
  Company Number: 377903

PATIENT
  Age: 45 Year
  Sex: Male
  Weight: 64.9 kg

DRUGS (1)
  1. FUZEON [Suspect]
     Indication: HIV INFECTION
     Dosage: 90 MG    2 PER DAY    SUBCUTANEOUS
     Route: 058
     Dates: start: 20040804

REACTIONS (10)
  - CHILLS [None]
  - ERYTHEMA [None]
  - INDURATION [None]
  - INJECTION SITE ERYTHEMA [None]
  - INJECTION SITE INDURATION [None]
  - INJECTION SITE PAIN [None]
  - INJECTION SITE REACTION [None]
  - INJECTION SITE SWELLING [None]
  - PYREXIA [None]
  - SWELLING [None]
